FAERS Safety Report 21463077 (Version 1)
Quarter: 2022Q4

REPORT INFORMATION
  Report Type: Spontaneous
  Country: CN (occurrence: CN)
  Receive Date: 20221017
  Receipt Date: 20221017
  Transmission Date: 20230113
  Serious: Yes (Death, Life-Threatening, Other)
  Sender: FDA-Public Use
  Company Number: CN-CELGENE-CHN-20200102260

PATIENT
  Age: 70 Year
  Sex: Male
  Weight: 50 kg

DRUGS (17)
  1. ABRAXANE [Suspect]
     Active Substance: PACLITAXEL
     Indication: Non-small cell lung cancer
     Dosage: FREQUENCY TEXT: DAYS 1, 8 AND 15?155 MILLIGRAM
     Route: 042
     Dates: start: 20191120, end: 20191120
  2. ABRAXANE [Suspect]
     Active Substance: PACLITAXEL
     Dosage: FREQUENCY TEXT: DAYS 1, 8 AND 15?152 MILLIGRAM
     Route: 042
     Dates: start: 20191219, end: 20191226
  3. CARBOPLATIN [Suspect]
     Active Substance: CARBOPLATIN
     Indication: Non-small cell lung cancer
     Dosage: 412 MILLIGRAM
     Route: 041
     Dates: start: 20191120
  4. CARBOPLATIN [Suspect]
     Active Substance: CARBOPLATIN
     Dosage: 375 MILLIGRAM
     Route: 041
     Dates: start: 20191219, end: 20191219
  5. SERPLULIMAB [Suspect]
     Active Substance: SERPLULIMAB
     Indication: Non-small cell lung cancer
     Dosage: 234 MILLIGRAM
     Route: 041
     Dates: start: 20191120, end: 20191120
  6. SERPLULIMAB [Suspect]
     Active Substance: SERPLULIMAB
     Dosage: 234 MILLIGRAM
     Route: 041
     Dates: start: 20191219, end: 20191219
  7. HEPARIN SODIUM [Concomitant]
     Active Substance: HEPARIN SODIUM
     Indication: Thrombosis prophylaxis
     Dosage: 4250 IU (INTERNATIONAL UNIT)
     Route: 058
     Dates: start: 20191217, end: 20191228
  8. CIMETIDINE IN SODIUM CHLORIDE [Concomitant]
     Indication: Gastrooesophageal reflux prophylaxis
     Dosage: 100 MILLILITER
     Route: 042
     Dates: start: 20191219, end: 20191231
  9. Compound glycyrrhizin [Concomitant]
     Indication: Liver function test abnormal
     Dosage: 60 MILLILITER
     Route: 042
     Dates: start: 20191219, end: 20191231
  10. Di Yu Sheng Bai [Concomitant]
     Indication: Prophylaxis
     Dosage: 1.2 GRAM
     Route: 065
     Dates: start: 20191220, end: 20191231
  11. Sheng Xue Xiao Ban [Concomitant]
     Indication: Platelet count increased
     Dosage: 5.4 GRAM
     Route: 048
     Dates: start: 20191220, end: 20191231
  12. ALBUTEROL SULFATE [Concomitant]
     Active Substance: ALBUTEROL SULFATE
     Indication: Productive cough
     Dosage: 20 MILLIGRAM
     Route: 065
     Dates: start: 20191220, end: 20191231
  13. POTASSIUM CHLORIDE [Concomitant]
     Active Substance: POTASSIUM CHLORIDE
     Indication: Blood potassium increased
     Dosage: .75 GRAM
     Route: 065
     Dates: start: 20191231, end: 20191231
  14. VITAMIN B6 [Concomitant]
     Active Substance: PYRIDOXINE HYDROCHLORIDE
     Indication: Prophylaxis of nausea and vomiting
     Dosage: .1 GRAM
     Route: 048
     Dates: start: 20191219, end: 20191231
  15. LAMOTRIGINE [Concomitant]
     Active Substance: LAMOTRIGINE
     Indication: Analgesic therapy
     Dosage: 90 MILLIGRAM
     Route: 065
     Dates: start: 20191226, end: 20191231
  16. BUCINNAZINE HYDROCHLORIDE [Concomitant]
     Indication: Pain
     Dosage: 90 MILLIGRAM
     Route: 048
     Dates: start: 20191219, end: 20191231
  17. MEGESTROL ACETATE [Concomitant]
     Active Substance: MEGESTROL ACETATE
     Indication: Increased appetite
     Dosage: FREQUENCY TEXT: TID?240 MILLIGRAM
     Route: 048
     Dates: start: 20191220, end: 20191226

REACTIONS (1)
  - Pneumonia [Fatal]

NARRATIVE: CASE EVENT DATE: 20191122
